FAERS Safety Report 13485339 (Version 1)
Quarter: 2017Q2

REPORT INFORMATION
  Report Type: Spontaneous
  Country: DE (occurrence: DE)
  Receive Date: 20170425
  Receipt Date: 20170425
  Transmission Date: 20170830
  Serious: Yes (Other)
  Sender: FDA-Public Use
  Company Number: DE-ALVOGEN-2017-ALVOGEN-091957

PATIENT
  Age: 13 Year
  Sex: Male

DRUGS (7)
  1. CYTARABINE. [Suspect]
     Active Substance: CYTARABINE
     Indication: NON-HODGKIN^S LYMPHOMA
     Dosage: 4 X 75 ON 1ST A4, 4 X 150 ON 1ST B4 AND 2ND A4 B4
     Route: 037
  2. DEXAMETHASONE. [Suspect]
     Active Substance: DEXAMETHASONE
     Indication: NON-HODGKIN^S LYMPHOMA
     Dosage: AS REPORTED: 5X10MG/M2
     Route: 037
  3. DOXORUBICIN [Suspect]
     Active Substance: DOXORUBICIN
     Indication: NON-HODGKIN^S LYMPHOMA
     Dosage: 2 X 16.5 ON 1ST B4 AND 2 X 25 2ND B4
     Route: 037
  4. ETOPOSIDE. [Suspect]
     Active Substance: ETOPOSIDE
     Indication: NON-HODGKIN^S LYMPHOMA
     Dosage: 2 X 100 ON 2ND A4
     Route: 037
  5. METHOTREXATE. [Suspect]
     Active Substance: METHOTREXATE
     Indication: NON-HODGKIN^S LYMPHOMA
     Dosage: 1 X 500 ON 1ST A4,1 X 1000 ON 1ST B4 AND 2ND A4 B4
     Route: 037
  6. VINCRISTINE [Suspect]
     Active Substance: VINCRISTINE
     Indication: NON-HODGKIN^S LYMPHOMA
     Dosage: 1 X 0.75 ON 1ST A4, 1X1.5 ON 1ST B4 AND 2ND A4 B4
     Route: 037
  7. CYCLOPHOSPHAMIDE. [Suspect]
     Active Substance: CYCLOPHOSPHAMIDE
     Indication: NON-HODGKIN^S LYMPHOMA
     Dosage: 5 X 100 ON 1ST A4,5 X 200 ON 1ST B4 AND 2ND A4 B4
     Route: 037

REACTIONS (3)
  - Haematuria [Recovered/Resolved]
  - Haematotoxicity [Unknown]
  - Hepatotoxicity [Unknown]
